FAERS Safety Report 6230771-3 (Version None)
Quarter: 2009Q2

REPORT INFORMATION
  Report Type: 
  Country: None (occurrence: None)
  Receive Date: 20090616
  Receipt Date: 20090603
  Transmission Date: 20091009
  Serious: Yes (Hospitalization)
  Sender: FDA-Public Use
  Company Number: JP-PFIZER INC-2009218762

PATIENT
  Age: 70 Year

DRUGS (4)
  1. ZOLOFT [Suspect]
     Indication: PANIC DISORDER
     Dosage: UNK
     Route: 048
     Dates: start: 20090515, end: 20090501
  2. CONSTAN [Suspect]
     Indication: PANIC DISORDER
     Dosage: UNK
     Route: 048
     Dates: start: 20090515, end: 20090501
  3. TOLEDOMIN [Concomitant]
     Route: 048
  4. DOGMATYL [Concomitant]

REACTIONS (1)
  - RESPIRATORY DEPRESSION [None]
